FAERS Safety Report 9136322 (Version 1)
Quarter: 2013Q1

REPORT INFORMATION
  Report Type: Report from Study
  Country: US (occurrence: US)
  Receive Date: 20130304
  Receipt Date: 20130304
  Transmission Date: 20140127
  Serious: No
  Sender: FDA-Public Use
  Company Number: US-ABBOTT-12P-163-0974442-00

PATIENT
  Sex: Male
  Weight: 122.58 kg

DRUGS (9)
  1. ACTOS [Concomitant]
     Indication: DIABETES MELLITUS
  2. LIPITOR [Concomitant]
     Indication: BLOOD CHOLESTEROL INCREASED
  3. NAPROXEN [Concomitant]
     Indication: INFLAMMATION
  4. BENAZEPRIL [Concomitant]
     Indication: HYPERTENSION
  5. METFORMIN [Concomitant]
     Indication: DIABETES MELLITUS
  6. FELODIPINE [Concomitant]
     Indication: HYPERTENSION
  7. HYDROCODONE [Concomitant]
     Indication: PAIN
  8. GABAPENTIN [Concomitant]
     Indication: PAIN
  9. ANDROGEL 1% [Suspect]
     Indication: BLOOD TESTOSTERONE DECREASED
     Dosage: 1%-4 PUMPS DAILY
     Dates: start: 201203, end: 20120820

REACTIONS (2)
  - Local swelling [Not Recovered/Not Resolved]
  - Breast swelling [Not Recovered/Not Resolved]
